FAERS Safety Report 12690925 (Version 1)
Quarter: 2016Q3

REPORT INFORMATION
  Report Type: Spontaneous
  Country: US (occurrence: US)
  Receive Date: 20160826
  Receipt Date: 20160826
  Transmission Date: 20161109
  Serious: No
  Sender: FDA-Public Use
  Company Number: US-BEH-2016072053

PATIENT
  Age: 72 Year
  Sex: Female

DRUGS (4)
  1. HIZENTRA [Suspect]
     Active Substance: HUMAN IMMUNOGLOBULIN G
     Dosage: 1 G, ONCE
     Route: 058
     Dates: start: 20160718, end: 20160718
  2. TYLENOL [Concomitant]
     Active Substance: ACETAMINOPHEN
  3. HIZENTRA [Suspect]
     Active Substance: HUMAN IMMUNOGLOBULIN G
     Indication: PRODUCT USED FOR UNKNOWN INDICATION
     Dosage: 6 G, ONCE
     Route: 058
     Dates: start: 20160717, end: 20160717
  4. BENADRYL [Concomitant]
     Active Substance: DIPHENHYDRAMINE HYDROCHLORIDE

REACTIONS (8)
  - Back pain [Unknown]
  - Blood pressure increased [Unknown]
  - Erythema [Unknown]
  - Headache [Unknown]
  - Dyspnoea [Unknown]
  - Chest pain [Unknown]
  - Myalgia [Unknown]
  - Anxiety [Unknown]

NARRATIVE: CASE EVENT DATE: 20160717
